FAERS Safety Report 17001838 (Version 1)
Quarter: 2019Q4

REPORT INFORMATION
  Report Type: Spontaneous
  Country: FR (occurrence: FR)
  Receive Date: 20191106
  Receipt Date: 20191106
  Transmission Date: 20200122
  Serious: Yes (Disabling, Other)
  Sender: FDA-Public Use
  Company Number: FR-US-PROVELL PHARMACEUTICALS LLC-9014882

PATIENT
  Age: 61 Year
  Sex: Female
  Weight: 67 kg

DRUGS (1)
  1. LEVOTHYROX 125 NF [Suspect]
     Active Substance: LEVOTHYROXINE SODIUM
     Indication: HYPOTHYROIDISM
     Route: 048
     Dates: start: 20170718, end: 20170825

REACTIONS (20)
  - Malaise [Unknown]
  - Depersonalisation/derealisation disorder [Unknown]
  - Impaired driving ability [Unknown]
  - Insomnia [Recovered/Resolved]
  - Depression [Unknown]
  - Anxiety [Unknown]
  - Irritability [Recovered/Resolved]
  - Memory impairment [Unknown]
  - Blood creatine phosphokinase increased [Recovered/Resolved]
  - Muscle spasms [Unknown]
  - Myalgia [Recovered/Resolved]
  - Impatience [Unknown]
  - Aggression [Unknown]
  - Crying [Unknown]
  - Limb discomfort [Unknown]
  - Palpitations [Recovered/Resolved]
  - Mood altered [Unknown]
  - Loss of personal independence in daily activities [Unknown]
  - Muscle injury [Unknown]
  - Fatigue [Unknown]

NARRATIVE: CASE EVENT DATE: 2017
